FAERS Safety Report 7584338-5 (Version None)
Quarter: 2011Q2

REPORT INFORMATION
  Report Type: 
  Country: None (occurrence: None)
  Receive Date: 20110630
  Receipt Date: 20110620
  Transmission Date: 20111010
  Serious: Yes (Hospitalization)
  Sender: FDA-Public Use
  Company Number: GB-UCBSA-034757

PATIENT
  Sex: Male
  Weight: 85 kg

DRUGS (18)
  1. ALLOPURINOL [Concomitant]
  2. METFORMIN HCL [Concomitant]
  3. MEPTID [Concomitant]
  4. INSULATARD [Concomitant]
     Dosage: 42 BREAKFAST, 38 TEATIME
  5. DIHYDROCODEINE BITARTRATE INJ [Concomitant]
  6. BISOPROLOL [Concomitant]
  7. FUROSEMIDE [Concomitant]
     Route: 048
  8. TAMSULOSIN HCL [Concomitant]
  9. COLCHICINE [Concomitant]
  10. IVABRADINE [Concomitant]
  11. GTN SPRAY [Concomitant]
  12. ISOSORBIDE DINITRATE [Suspect]
     Indication: ANGINA PECTORIS
  13. SIMVASTATIN [Concomitant]
     Dosage: NIGHTLY
  14. FRUMIL [Concomitant]
     Dosage: 5/40
  15. SPIRONOLACTONE [Concomitant]
  16. ISOSORBIDE DINITRATE [Suspect]
     Route: 048
  17. NICORANDIL [Concomitant]
     Dosage: 30 BID
  18. ALBUTEROL [Concomitant]
     Dosage: 2 PUFFS AS NEEDED

REACTIONS (2)
  - FALL [None]
  - DIZZINESS [None]
